FAERS Safety Report 21240272 (Version 1)
Quarter: 2022Q3

REPORT INFORMATION
  Report Type: Spontaneous
  Country: US (occurrence: None)
  Receive Date: 20220819
  Receipt Date: 20220819
  Transmission Date: 20221027
  Serious: Yes (Disabling, Other)
  Sender: FDA-Public Use
  Company Number: None

PATIENT
  Sex: Male

DRUGS (1)
  1. HUMIRA [Suspect]
     Active Substance: ADALIMUMAB
     Indication: Colitis ulcerative
     Dosage: 40MG OTHER SUBCUTNEOUS
     Route: 058
     Dates: start: 202012

REACTIONS (8)
  - T-cell lymphoma [None]
  - Monoclonal gammopathy [None]
  - Asthma [None]
  - Increased tendency to bruise [None]
  - Decreased appetite [None]
  - Weight decreased [None]
  - Clostridium difficile infection [None]
  - Impaired quality of life [None]
